FAERS Safety Report 5659554-X (Version None)
Quarter: 2008Q1

REPORT INFORMATION
  Report Type: 
  Country: None (occurrence: None)
  Receive Date: 20080311
  Receipt Date: 20080303
  Transmission Date: 20080703
  Serious: Yes (Life-Threatening, Hospitalization)
  Sender: FDA-Public Use
  Company Number: DK-JNJFOC-20080207076

PATIENT
  Sex: Female
  Weight: 60.6 kg

DRUGS (3)
  1. REMICADE [Suspect]
     Indication: CROHN'S DISEASE
     Route: 042
  2. IMUREL [Concomitant]
  3. PREDNISOLONE [Concomitant]

REACTIONS (2)
  - BRAIN OEDEMA [None]
  - MENINGITIS LISTERIA [None]
